FAERS Safety Report 24119185 (Version 1)
Quarter: 2024Q3

REPORT INFORMATION
  Report Type: Spontaneous
  Country: LU (occurrence: LU)
  Receive Date: 20240722
  Receipt Date: 20240722
  Transmission Date: 20241017
  Serious: Yes (Life-Threatening)
  Sender: CSL BEHRING
  Company Number: None

PATIENT
  Age: 7 Year
  Sex: Male
  Weight: 23 kg

DRUGS (6)
  1. ALBUREX [Suspect]
     Active Substance: ALBUMIN HUMAN
     Indication: Hypoalbuminaemia
     Dosage: 20 G/100 ML
     Route: 042
     Dates: start: 20240704, end: 20240705
  2. COFACT [Concomitant]
     Active Substance: COAGULATION FACTOR IX HUMAN\COAGULATION FACTOR VII HUMAN\COAGULATION FACTOR X HUMAN\PROTEIN C\PROTEI
     Route: 042
     Dates: start: 20240704
  3. FIBRYGA [Concomitant]
     Active Substance: FIBRINOGEN HUMAN
     Route: 042
     Dates: start: 20240704
  4. ONDANSETRON [Concomitant]
     Active Substance: ONDANSETRON
     Dosage: 4 MG/5 ML
     Route: 048
  5. ETOPOSIDE [Concomitant]
     Active Substance: ETOPOSIDE
     Indication: Haemophagocytic lymphohistiocytosis
     Route: 042
     Dates: start: 20240704, end: 20240704
  6. LASIX [Concomitant]
     Active Substance: FUROSEMIDE
     Route: 042
     Dates: start: 20240704

REACTIONS (1)
  - Anaphylactic shock [Recovering/Resolving]

NARRATIVE: CASE EVENT DATE: 20240705
